FAERS Safety Report 23182314 (Version 1)
Quarter: 2023Q4

REPORT INFORMATION
  Report Type: Report from Study
  Country: US (occurrence: US)
  Receive Date: 20231114
  Receipt Date: 20231114
  Transmission Date: 20240110
  Serious: Yes (Hospitalization)
  Sender: FDA-Public Use
  Company Number: US-PFIZER INC-PV202300184373

PATIENT
  Age: 62 Year
  Sex: Female

DRUGS (1)
  1. BRAFTOVI [Suspect]
     Active Substance: ENCORAFENIB
     Dosage: 75 MG
     Dates: end: 20231028

REACTIONS (7)
  - Dehydration [Unknown]
  - Abdominal pain upper [Unknown]
  - Diarrhoea [Unknown]
  - Choking sensation [Recovered/Resolved]
  - Chest discomfort [Unknown]
  - Renal disorder [Unknown]
  - Pulse abnormal [Unknown]
